FAERS Safety Report 8390137-7 (Version None)
Quarter: 2012Q2

REPORT INFORMATION
  Report Type: 
  Country: None (occurrence: None)
  Receive Date: 20120529
  Receipt Date: 20120522
  Transmission Date: 20120825
  Serious: Yes (Other)
  Sender: FDA-Public Use
  Company Number: BR-BAYER-2012-051456

PATIENT
  Sex: Female

DRUGS (9)
  1. VENALOT [COUMARIN,TROXERUTIN] [Concomitant]
     Indication: THROMBOSIS
     Dosage: 1 DF, QD
     Route: 048
  2. BETAJECT COMFORT [Suspect]
     Indication: DEVICE THERAPY
  3. LORATADINE [Concomitant]
     Indication: HYPERSENSITIVITY
     Dosage: 10 MG, QD
     Route: 048
  4. LEVOTHYROXINE SODIUM [Concomitant]
     Indication: THYROID DISORDER
     Dosage: 50 MCG/24HR, UNK
     Route: 048
  5. SINGULAIR [Concomitant]
     Dosage: 1 DF, QD
     Route: 048
  6. WARFARIN SODIUM [Concomitant]
     Dosage: 5 MG, QD
     Route: 048
  7. RANITIDINE [Concomitant]
     Indication: GASTRIC DISORDER
     Dosage: 150 MG, QD
     Route: 048
  8. BETASERON [Suspect]
     Indication: MULTIPLE SCLEROSIS
     Dosage: 1 ML, QD
     Route: 058
     Dates: start: 20090101
  9. LOSARTAN POTASSIUM AND HYDROCHLOROTHIAZIDE [Concomitant]
     Indication: HYPERTENSION
     Dosage: 1 DF, QD
     Route: 048

REACTIONS (6)
  - COGNITIVE DISORDER [None]
  - MEMORY IMPAIRMENT [None]
  - INJECTION SITE ERYTHEMA [None]
  - INJECTION SITE PAIN [None]
  - INJECTION SITE HAEMATOMA [None]
  - NO THERAPEUTIC RESPONSE [None]
